FAERS Safety Report 7796756-0 (Version None)
Quarter: 2011Q4

REPORT INFORMATION
  Report Type: 
  Country: None (occurrence: None)
  Receive Date: 20111005
  Receipt Date: 20111003
  Transmission Date: 20120403
  Serious: Yes (Hospitalization)
  Sender: FDA-Public Use
  Company Number: JP-PFIZER INC-2011235746

PATIENT
  Age: 63 Year
  Sex: Male

DRUGS (2)
  1. VARENICLINE TARTRATE [Suspect]
     Indication: NICOTINE DEPENDENCE
     Dosage: 1 MG, DAILY
     Route: 048
     Dates: start: 20110315, end: 20110322
  2. MOTILIUM [Concomitant]
     Dosage: 10 MG, DAILY
     Route: 048
     Dates: start: 20110315, end: 20110322

REACTIONS (1)
  - CHOLECYSTITIS ACUTE [None]
